FAERS Safety Report 5282371-X (Version None)
Quarter: 2007Q1

REPORT INFORMATION
  Report Type: 
  Country: None (occurrence: None)
  Receive Date: 20070326
  Receipt Date: 20070315
  Transmission Date: 20070707
  Serious: Yes (Other)
  Sender: FDA-Public Use
  Company Number: GXKR2007CH02612

PATIENT
  Age: 31 Year
  Sex: Female

DRUGS (2)
  1. FLUNIZOL (NGX) (FLUCONAZOLE) CAPSULE, 150MG [Suspect]
     Indication: VAGINAL INFECTION
     Dosage: 150 MG, ONCE/SINGLE, ORAL
     Route: 048
     Dates: start: 20070129, end: 20070129
  2. CLOTRIMAZOLE [Concomitant]

REACTIONS (2)
  - ABORTION SPONTANEOUS [None]
  - DRUG EXPOSURE DURING PREGNANCY [None]
